FAERS Safety Report 22707935 (Version 8)
Quarter: 2023Q4

REPORT INFORMATION
  Report Type: Report from Study
  Country: CA (occurrence: CA)
  Receive Date: 20230714
  Receipt Date: 20231010
  Transmission Date: 20240109
  Serious: Yes (Hospitalization, Other)
  Sender: FDA-Public Use
  Company Number: CA-HLS-202202111

PATIENT
  Age: 25 Year
  Sex: Male

DRUGS (5)
  1. CLOZARIL [Suspect]
     Active Substance: CLOZAPINE
     Indication: Obsessive-compulsive disorder
     Route: 048
     Dates: end: 20230922
  2. CLOZARIL [Suspect]
     Active Substance: CLOZAPINE
     Indication: Schizophrenia
     Route: 048
     Dates: end: 20230922
  3. CLOZARIL [Suspect]
     Active Substance: CLOZAPINE
     Indication: Obsessive-compulsive disorder
     Dosage: UNKNOWN
     Route: 048
     Dates: start: 20170620, end: 20221110
  4. CLOZARIL [Suspect]
     Active Substance: CLOZAPINE
     Indication: Schizophrenia
     Dosage: UNKNOWN
     Route: 048
     Dates: start: 20170620, end: 20221110
  5. PAROXETINE [Concomitant]
     Active Substance: PAROXETINE
     Indication: Product used for unknown indication
     Dosage: 80 MG
     Route: 065

REACTIONS (12)
  - Body temperature decreased [Recovered/Resolved]
  - Treatment noncompliance [Unknown]
  - Dizziness [Recovered/Resolved]
  - Dizziness [Unknown]
  - Obsessive-compulsive disorder [Not Recovered/Not Resolved]
  - Seizure [Unknown]
  - Tachycardia [Recovering/Resolving]
  - Salivary hypersecretion [Not Recovered/Not Resolved]
  - Hypertonia [Recovered/Resolved]
  - Off label use [Unknown]
  - Drug effect less than expected [Recovered/Resolved]
  - Tremor [Not Recovered/Not Resolved]

NARRATIVE: CASE EVENT DATE: 20170620
